FAERS Safety Report 7701838 (Version 11)
Quarter: 2014Q1

REPORT INFORMATION
  Report Type: Spontaneous
  Country: IE (occurrence: IE)
  Receive Date: 20101209
  Receipt Date: 20140127
  Transmission Date: 20141002
  Serious: Yes (Other)
  Sender: FDA-Public Use
  Company Number: PHFR2010IE05566

PATIENT
  Age: 52 Year
  Sex: Male
  Weight: 100 kg

DRUGS (12)
  1. CLOZARIL [Suspect]
     Indication: SCHIZOPHRENIA, PARANOID TYPE
     Dosage: 700 MG DAILY
     Route: 048
     Dates: start: 199301
  2. CLOZARIL [Suspect]
     Route: 048
     Dates: start: 199312
  3. CLOZARIL [Suspect]
     Dosage: 700 MG, (250 MG MANE 450 MG NOCTE)
     Route: 048
     Dates: start: 20010701
  4. EPILIM CHRONO [Suspect]
     Dosage: 400 MG, BID
     Route: 048
  5. EPILIM CHRONO [Suspect]
     Dosage: 400 MG
     Route: 048
  6. EPILIM CHRONO [Suspect]
     Dosage: 500 MG, BID
     Route: 048
  7. NICOTINE [Suspect]
     Dosage: UNK
  8. ZOLPIDEM [Concomitant]
     Dosage: 10 MG, UNK
     Route: 048
  9. COZAAR [Concomitant]
     Indication: HYPERTENSION
     Dosage: 50 MG, QD
     Route: 048
  10. DUPHALAC [Concomitant]
     Indication: CONSTIPATION
     Dosage: 15 MG, UNK
     Route: 048
  11. GLUCOPHAGE [Concomitant]
     Indication: DIABETES MELLITUS
     Dosage: 500 MG, BID
     Route: 048
  12. GLUCOPHAGE [Concomitant]
     Dosage: 500 MG, UNK
     Route: 048

REACTIONS (8)
  - Lymphocytosis [Unknown]
  - Lymphocyte morphology abnormal [Recovered/Resolved]
  - Lymphocyte count increased [Recovering/Resolving]
  - Schizophrenia [Unknown]
  - Diabetes mellitus [Unknown]
  - Anisocytosis [Unknown]
  - Platelet count decreased [Not Recovered/Not Resolved]
  - White blood cell count increased [Recovering/Resolving]
